FAERS Safety Report 10573485 (Version 3)
Quarter: 2014Q4

REPORT INFORMATION
  Report Type: Spontaneous
  Country: JP (occurrence: JP)
  Receive Date: 20141110
  Receipt Date: 20141201
  Transmission Date: 20150529
  Serious: Yes (Other)
  Sender: FDA-Public Use
  Company Number: JP-NOVOPROD-427388

PATIENT
  Age: 43 Year
  Sex: Female
  Weight: 162 kg

DRUGS (6)
  1. NORDITROPIN [Suspect]
     Active Substance: SOMATROPIN
     Dosage: 0.05 MG, QD
     Route: 058
     Dates: start: 20121229
  2. NORDITROPIN [Suspect]
     Active Substance: SOMATROPIN
     Dosage: 0.2 MG, QD
     Route: 058
     Dates: start: 20130219
  3. NORDITROPIN [Suspect]
     Active Substance: SOMATROPIN
     Dosage: 0.225
     Route: 058
     Dates: start: 20130608
  4. NORDITROPIN [Suspect]
     Active Substance: SOMATROPIN
     Dosage: 0.15 MG, QD
     Route: 058
     Dates: start: 20130127
  5. NORDITROPIN [Suspect]
     Active Substance: SOMATROPIN
     Indication: GROWTH HORMONE DEFICIENCY
     Dosage: 0.22 MG, QD (0.125-0.225MG)
     Route: 058
     Dates: start: 20100915
  6. NORDITROPIN [Suspect]
     Active Substance: SOMATROPIN
     Dosage: 0.15 MG, QD
     Route: 058
     Dates: end: 20121208

REACTIONS (2)
  - Condition aggravated [Recovering/Resolving]
  - Non-secretory adenoma of pituitary [Recovering/Resolving]

NARRATIVE: CASE EVENT DATE: 20121120
